FAERS Safety Report 13260248 (Version 1)
Quarter: 2017Q1

REPORT INFORMATION
  Report Type: Spontaneous
  Country: US (occurrence: US)
  Receive Date: 20170222
  Receipt Date: 20170222
  Transmission Date: 20170428
  Serious: Yes (Disabling)
  Sender: FDA-Public Use
  Company Number: None

PATIENT
  Age: 54 Year
  Sex: Female
  Weight: 69.46 kg

DRUGS (9)
  1. PROVILGIL [Concomitant]
  2. TAMOXIFEN [Concomitant]
     Active Substance: TAMOXIFEN
  3. TOVIAZ [Concomitant]
     Active Substance: FESOTERODINE FUMARATE
  4. SYNTHROID [Concomitant]
     Active Substance: LEVOTHYROXINE SODIUM
  5. V H.D [Concomitant]
  6. VITAMINS [Concomitant]
     Active Substance: VITAMINS
  7. PROLIXIN [Suspect]
     Active Substance: FLUPHENAZINE HYDROCHLORIDE
  8. VITAMIN B12 [Concomitant]
     Active Substance: CYANOCOBALAMIN
  9. CALCITE CHEWS [Concomitant]

REACTIONS (4)
  - Balance disorder [None]
  - Dizziness [None]
  - Fall [None]
  - Gait disturbance [None]

NARRATIVE: CASE EVENT DATE: 20161128
